FAERS Safety Report 4549422-9 (Version None)
Quarter: 2005Q1

REPORT INFORMATION
  Report Type: 
  Country: None (occurrence: None)
  Receive Date: 20050111
  Receipt Date: 20050104
  Transmission Date: 20050727
  Serious: Yes (Hospitalization)
  Sender: FDA-Public Use
  Company Number: 200510040FR

PATIENT
  Age: 76 Year
  Sex: Female
  Weight: 50 kg

DRUGS (8)
  1. PYOSTACINE [Suspect]
     Route: 048
  2. ORELOX [Suspect]
     Indication: CHRONIC OBSTRUCTIVE PULMONARY DISEASE
     Route: 048
  3. BIRODOGYL [Suspect]
     Indication: TOOTH EXTRACTION
     Route: 048
     Dates: start: 20040806, end: 20040812
  4. AUGMENTIN [Suspect]
     Indication: CHRONIC OBSTRUCTIVE PULMONARY DISEASE
     Route: 048
     Dates: start: 20040802, end: 20040812
  5. CIPROFLOXACIN [Suspect]
     Indication: CHRONIC OBSTRUCTIVE PULMONARY DISEASE
     Route: 048
     Dates: start: 20040802, end: 20040812
  6. FLANID [Concomitant]
     Indication: TOOTH EXTRACTION
     Route: 048
     Dates: start: 20040806, end: 20040811
  7. XYZALL                                  /AUT/ [Concomitant]
     Route: 048
  8. ATARAX [Concomitant]
     Route: 048

REACTIONS (2)
  - DERMATITIS EXFOLIATIVE [None]
  - LYMPHADENITIS [None]
